FAERS Safety Report 4720689-7 (Version None)
Quarter: 2005Q3

REPORT INFORMATION
  Report Type: 
  Country: None (occurrence: None)
  Receive Date: 20050721
  Receipt Date: 20050707
  Transmission Date: 20060218
  Serious: Yes (Death, Life-Threatening)
  Sender: FDA-Public Use
  Company Number: GB-JNJFOC-20050701674

PATIENT
  Age: 17 Year
  Sex: Male

DRUGS (2)
  1. CONCERTA [Suspect]
     Route: 048
  2. ERYTHROMYCIN [Concomitant]
     Indication: ACNE

REACTIONS (1)
  - SUDDEN DEATH [None]
